FAERS Safety Report 21750236 (Version 2)
Quarter: 2022Q4

REPORT INFORMATION
  Report Type: Spontaneous
  Country: DE (occurrence: DE)
  Receive Date: 20221219
  Receipt Date: 20221223
  Transmission Date: 20230113
  Serious: Yes (Other)
  Sender: FDA-Public Use
  Company Number: DE-BAUSCHBL-2022BNL002861

PATIENT
  Age: 2 Year
  Sex: Female

DRUGS (1)
  1. DEXAMETHASONE [Suspect]
     Active Substance: DEXAMETHASONE
     Indication: Postoperative care
     Dosage: 3 DROPS LEFT, 1 DROP RIGHT EYE, (1.3 MG/ML) PER DAY CORRESPONDING TO 0.3 MG DEXAMETHASONE PER DAY.
     Route: 061
     Dates: end: 202011

REACTIONS (2)
  - Cushing^s syndrome [Recovering/Resolving]
  - Secondary adrenocortical insufficiency [Recovering/Resolving]
